FAERS Safety Report 12760813 (Version 2)
Quarter: 2018Q3

REPORT INFORMATION
  Report Type: Spontaneous
  Country: US (occurrence: US)
  Receive Date: 20160919
  Receipt Date: 20180913
  Transmission Date: 20181010
  Serious: No
  Sender: FDA-Public Use
  Company Number: US-ALLERGAN-1516198US

PATIENT
  Sex: Female

DRUGS (6)
  1. VANIQA [Suspect]
     Active Substance: EFLORNITHINE HYDROCHLORIDE
     Indication: HAIR GROWTH ABNORMAL
     Dosage: UNK
     Route: 061
     Dates: start: 201801
  2. LOSARTAN. [Concomitant]
     Active Substance: LOSARTAN
     Indication: HYPERTENSION
     Dosage: UNK
     Route: 048
  3. CLINIQUE OIL FREE MAKE UP [Concomitant]
     Indication: PRODUCT USED FOR UNKNOWN INDICATION
     Dosage: UNK
     Route: 061
  4. VANIQA [Suspect]
     Active Substance: EFLORNITHINE HYDROCHLORIDE
     Dosage: UNKNOWN, BID
     Route: 061
  5. PRAVACHOL [Concomitant]
     Active Substance: PRAVASTATIN SODIUM
     Indication: BLOOD CHOLESTEROL INCREASED
     Route: 048
  6. VANIQA [Suspect]
     Active Substance: EFLORNITHINE HYDROCHLORIDE
     Dosage: UNK
     Route: 061

REACTIONS (2)
  - Expired product administered [Unknown]
  - Drug ineffective [Unknown]
